FAERS Safety Report 6578755-X (Version None)
Quarter: 2010Q1

REPORT INFORMATION
  Report Type: 
  Country: None (occurrence: None)
  Receive Date: 20100202
  Receipt Date: 20100122
  Transmission Date: 20100710
  Serious: Yes (Other)
  Sender: FDA-Public Use
  Company Number: 2010AP000151

PATIENT
  Age: 63 Year
  Sex: Male

DRUGS (10)
  1. TERBINAFINE HCL [Suspect]
     Indication: ONYCHOMYCOSIS
     Dosage: 250 MG;PO
     Route: 048
     Dates: start: 20090624, end: 20091125
  2. AMLODIPINE [Concomitant]
  3. ATORVASTATIN CALCIUM [Concomitant]
  4. BECLOMETHASONE DIPROPIONATE [Concomitant]
  5. BENDROFLUMETHIAZIDE (BENDROFLUMETHIAZIDE) [Concomitant]
  6. DOXAZOSIN MESYLATE [Concomitant]
  7. EXENATIDE (EXENATIDE) [Concomitant]
  8. METFORMIN HCL [Concomitant]
  9. RAMIPRIL [Concomitant]
  10. CROMOGLICATE SODIUM (CROMOGLICATE SODIUM) [Concomitant]

REACTIONS (2)
  - GLOMERULAR FILTRATION RATE DECREASED [None]
  - RENAL IMPAIRMENT [None]
